FAERS Safety Report 6528985-8 (Version None)
Quarter: 2010Q1

REPORT INFORMATION
  Report Type: 
  Country: None (occurrence: None)
  Receive Date: 20100106
  Receipt Date: 20091229
  Transmission Date: 20100710
  Serious: Yes (Hospitalization)
  Sender: FDA-Public Use
  Company Number: US-AMGEN-KDC382947

PATIENT
  Sex: Male
  Weight: 87.2 kg

DRUGS (2)
  1. PANITUMUMAB [Suspect]
     Indication: SQUAMOUS CELL CARCINOMA
     Dates: start: 20091116
  2. RADIATION THERAPY [Concomitant]
     Dates: start: 20091116

REACTIONS (4)
  - DEHYDRATION [None]
  - DYSPHAGIA [None]
  - RADIATION MUCOSITIS [None]
  - WEIGHT DECREASED [None]
